FAERS Safety Report 8015950-7 (Version None)
Quarter: 2011Q4

REPORT INFORMATION
  Report Type: 
  Country: None (occurrence: None)
  Receive Date: 20111230
  Receipt Date: 20111219
  Transmission Date: 20120403
  Serious: Yes (Hospitalization)
  Sender: FDA-Public Use
  Company Number: KR-ROCHE-786029

PATIENT
  Sex: Female

DRUGS (14)
  1. METHOTREXATE [Concomitant]
     Route: 048
  2. FOLIC ACID [Concomitant]
     Route: 048
  3. LEVOSULPIRIDE [Concomitant]
     Route: 048
     Dates: start: 20110114, end: 20110117
  4. RABEPRAZOLE SODIUM [Concomitant]
     Route: 048
     Dates: start: 20110114, end: 20110124
  5. PIPRINHYDRINATE [Concomitant]
     Route: 048
     Dates: start: 20110114, end: 20110117
  6. REBAMIPIDE [Concomitant]
     Route: 048
     Dates: start: 20110114, end: 20110124
  7. ACTEMRA [Suspect]
     Indication: RHEUMATOID ARTHRITIS
     Dosage: LAST DOSE PRIOR TO SAE: 02 JUN 2011, MRA-SC
     Route: 042
     Dates: start: 20101021, end: 20110602
  8. BENPROPERINE PHOSPHATE [Concomitant]
     Route: 048
     Dates: start: 20110114, end: 20110117
  9. CELECOXIB [Concomitant]
     Route: 048
  10. FEMOSTON [Concomitant]
     Route: 048
     Dates: start: 20091215, end: 20100601
  11. ALMAGATE [Concomitant]
     Route: 048
     Dates: start: 20110114, end: 20110124
  12. ACEBROPHYLLINE [Concomitant]
     Route: 048
     Dates: start: 20110307, end: 20110308
  13. MEQUITAZINE [Concomitant]
     Route: 048
     Dates: start: 20110307, end: 20110308
  14. BROMELAIN [Concomitant]
     Route: 048
     Dates: start: 20110114, end: 20110121

REACTIONS (3)
  - PULMONARY EMBOLISM [None]
  - LIGAMENT DISORDER [None]
  - DEEP VEIN THROMBOSIS [None]
